FAERS Safety Report 7956201-9 (Version None)
Quarter: 2011Q4

REPORT INFORMATION
  Report Type: 
  Country: None (occurrence: None)
  Receive Date: 20111115
  Receipt Date: 20111102
  Transmission Date: 20120403
  Serious: Yes (Hospitalization)
  Sender: FDA-Public Use
  Company Number: 2011PROUSA00760

PATIENT
  Age: 65 Year
  Sex: Male
  Weight: 79.9 kg

DRUGS (9)
  1. LOVENOX [Concomitant]
  2. IMODIUM [Concomitant]
  3. ZOCOR [Concomitant]
  4. ROCEPHIN [Concomitant]
  5. LUPRON [Concomitant]
  6. PROVENGE [Suspect]
     Dates: start: 20111024, end: 20111024
  7. ACETAMINOPHEN [Concomitant]
  8. CRESTOR [Concomitant]
  9. PROVENGE [Suspect]
     Indication: PROSTATE CANCER METASTATIC
     Dosage: 250 ML, SINGLE, INTRAVENOUS
     Route: 042
     Dates: start: 20111010, end: 20111010

REACTIONS (2)
  - CLOSTRIDIAL INFECTION [None]
  - CULTURE STOOL POSITIVE [None]
